FAERS Safety Report 5885310-3 (Version None)
Quarter: 2008Q3

REPORT INFORMATION
  Report Type: 
  Country: None (occurrence: None)
  Receive Date: 20080916
  Receipt Date: 20080902
  Transmission Date: 20090109
  Serious: Yes (Death, Hospitalization)
  Sender: FDA-Public Use
  Company Number: LB-ROCHE-584287

PATIENT
  Age: 21 Year
  Sex: Male

DRUGS (1)
  1. CELLCEPT [Suspect]
     Indication: SCLERODERMA
     Route: 048
     Dates: end: 20080825

REACTIONS (2)
  - BONE MARROW FAILURE [None]
  - CARDIAC FAILURE [None]
